FAERS Safety Report 9342126 (Version 1)
Quarter: 2013Q2

REPORT INFORMATION
  Report Type: Spontaneous
  Country: DE (occurrence: DE)
  Receive Date: 20130611
  Receipt Date: 20130611
  Transmission Date: 20140414
  Serious: Yes (Life-Threatening, Disabling)
  Sender: FDA-Public Use
  Company Number: DE-PFIZER INC-2013172160

PATIENT
  Age: 73 Year
  Sex: Female
  Weight: 62 kg

DRUGS (3)
  1. EPIRUBICIN HCL [Suspect]
     Indication: BREAST CANCER
     Dosage: 6 CYCLES FEC / ADEBAR STUDY
     Dates: start: 20050419, end: 20051007
  2. CYCLOPHOSPHAMIDE [Suspect]
     Indication: BREAST CANCER
     Dosage: 6 CYCLES FEC / ADEBAR STUDY
     Dates: start: 20050419, end: 20051007
  3. FLUOROURACIL [Concomitant]
     Indication: BREAST CANCER
     Dosage: 6 CYCLES FEC / ADEBAR STUDY

REACTIONS (2)
  - Second primary malignancy [Recovered/Resolved with Sequelae]
  - Chronic myelomonocytic leukaemia [Recovered/Resolved with Sequelae]
